FAERS Safety Report 11801104 (Version 1)
Quarter: 2015Q4

REPORT INFORMATION
  Report Type: Spontaneous
  Country: AU (occurrence: AU)
  Receive Date: 20151204
  Receipt Date: 20151204
  Transmission Date: 20160305
  Serious: Yes (Death, Hospitalization)
  Sender: FDA-Public Use
  Company Number: AU-ACTELION-A-CH2015-127885

PATIENT
  Age: 80 Year
  Sex: Female

DRUGS (1)
  1. OPSUMIT [Suspect]
     Active Substance: MACITENTAN
     Indication: PULMONARY ARTERIAL HYPERTENSION
     Dosage: UNK
     Route: 048
     Dates: start: 20150122

REACTIONS (5)
  - Liver function test abnormal [Fatal]
  - Stent placement [Unknown]
  - Bile duct obstruction [Fatal]
  - Pancreatic carcinoma [Fatal]
  - Cholangiocarcinoma [Fatal]
